FAERS Safety Report 4480047-X (Version None)
Quarter: 2004Q3

REPORT INFORMATION
  Report Type: 
  Country: None (occurrence: None)
  Receive Date: 20040923
  Receipt Date: 20040726
  Transmission Date: 20050211
  Serious: No
  Sender: FDA-Public Use
  Company Number: USA040465434

PATIENT
  Age: 57 Year
  Sex: Female

DRUGS (4)
  1. FORTEO [Suspect]
     Dates: start: 20040412
  2. COENZYME Q10 [Concomitant]
  3. CALCIUM [Concomitant]
  4. DURAGESIC [Concomitant]

REACTIONS (4)
  - ASTHENIA [None]
  - CHROMATURIA [None]
  - MYALGIA [None]
  - NAUSEA [None]
